FAERS Safety Report 7903885-7 (Version None)
Quarter: 2011Q4

REPORT INFORMATION
  Report Type: 
  Country: None (occurrence: None)
  Receive Date: 20111109
  Receipt Date: 20111102
  Transmission Date: 20120403
  Serious: Yes (Other)
  Sender: FDA-Public Use
  Company Number: US-JNJFOC-20111102500

PATIENT
  Age: 31 Year
  Sex: Male
  Weight: 73.48 kg

DRUGS (2)
  1. LISTERINE TOTAL CARE ZERO [Suspect]
     Indication: DENTAL DISORDER PROPHYLAXIS
     Dosage: TWO TEASPOONFULS
     Route: 048
     Dates: start: 20111101, end: 20111101
  2. PRILOSEC [Concomitant]
     Indication: HYPERCHLORHYDRIA
     Route: 048

REACTIONS (3)
  - ORAL MUCOSAL EXFOLIATION [None]
  - DYSGEUSIA [None]
  - DRY MOUTH [None]
